FAERS Safety Report 26100441 (Version 1)
Quarter: 2025Q4

REPORT INFORMATION
  Report Type: Spontaneous
  Country: CA (occurrence: CA)
  Receive Date: 20251128
  Receipt Date: 20251128
  Transmission Date: 20260117
  Serious: Yes (Other)
  Sender: TEVA
  Company Number: CA-TEVA-VS-3395576

PATIENT

DRUGS (1)
  1. LORAZEPAM [Suspect]
     Active Substance: LORAZEPAM
     Indication: Anxiety
     Dosage: DOSE FORM: NOT SPECIFIED
     Route: 065

REACTIONS (4)
  - Anxiety [Unknown]
  - Drug withdrawal syndrome [Unknown]
  - Anger [Unknown]
  - Weight decreased [Unknown]
